FAERS Safety Report 10284671 (Version 1)
Quarter: 2014Q3

REPORT INFORMATION
  Report Type: Spontaneous
  Country: GB (occurrence: GB)
  Receive Date: 20140708
  Receipt Date: 20140708
  Transmission Date: 20150326
  Serious: Yes (Death)
  Sender: FDA-Public Use
  Company Number: GB-SA-2014SA089668

PATIENT
  Sex: Male

DRUGS (9)
  1. CYCLOPHOSPHAMIDE. [Suspect]
     Active Substance: CYCLOPHOSPHAMIDE
     Indication: CHRONIC LYMPHOCYTIC LEUKAEMIA
     Dosage: 4 THERAPY
     Route: 065
     Dates: start: 2008
  2. FLUDARABINE PHOSPHATE. [Suspect]
     Active Substance: FLUDARABINE PHOSPHATE
     Indication: CHRONIC LYMPHOCYTIC LEUKAEMIA
     Dosage: 1 THERAPY
     Route: 065
     Dates: start: 2011
  3. CYCLOPHOSPHAMIDE. [Suspect]
     Active Substance: CYCLOPHOSPHAMIDE
     Indication: CHRONIC LYMPHOCYTIC LEUKAEMIA
     Dosage: 1 THERAPY
     Route: 065
     Dates: start: 2011
  4. FLUDARABINE PHOSPHATE. [Suspect]
     Active Substance: FLUDARABINE PHOSPHATE
     Indication: CHRONIC LYMPHOCYTIC LEUKAEMIA
     Dosage: 1 THERAPY
     Route: 065
     Dates: start: 2011
  5. CYCLOPHOSPHAMIDE. [Suspect]
     Active Substance: CYCLOPHOSPHAMIDE
     Indication: CHRONIC LYMPHOCYTIC LEUKAEMIA
     Dosage: 1 THERAPY
     Route: 065
     Dates: start: 2011
  6. RITUXIMAB [Concomitant]
     Active Substance: RITUXIMAB
     Dates: start: 2011
  7. FLUDARABINE PHOSPHATE. [Suspect]
     Active Substance: FLUDARABINE PHOSPHATE
     Indication: CHRONIC LYMPHOCYTIC LEUKAEMIA
     Dosage: 4 THERAPY
     Route: 065
     Dates: start: 2008
  8. BENDAMUSTINE [Concomitant]
     Active Substance: BENDAMUSTINE
     Dosage: 2
     Dates: start: 2012
  9. BENDAMUSTINE [Concomitant]
     Active Substance: BENDAMUSTINE
     Dosage: 2
     Dates: start: 2013

REACTIONS (12)
  - Pancytopenia [Fatal]
  - Haemoglobin decreased [Fatal]
  - Platelet count decreased [Fatal]
  - Neutropenic sepsis [Fatal]
  - Blood triglycerides increased [Fatal]
  - Aplasia pure red cell [Fatal]
  - Pyrexia [Fatal]
  - Blood fibrinogen decreased [Fatal]
  - Parvovirus infection [Fatal]
  - Histiocytosis haematophagic [Fatal]
  - Serum ferritin increased [Fatal]
  - Splenomegaly [Fatal]
